FAERS Safety Report 12240677 (Version 1)
Quarter: 2016Q2

REPORT INFORMATION
  Report Type: Spontaneous
  Country: GB (occurrence: GB)
  Receive Date: 20160406
  Receipt Date: 20160406
  Transmission Date: 20160815
  Serious: Yes (Other)
  Sender: FDA-Public Use
  Company Number: GB-ROCHE-1351849

PATIENT
  Sex: Female

DRUGS (1)
  1. HERCEPTIN [Suspect]
     Active Substance: TRASTUZUMAB
     Indication: PRODUCT USED FOR UNKNOWN INDICATION
     Dosage: CYCLE 57, CYCLE 60, CYCLE 64.
     Route: 058

REACTIONS (8)
  - Cardiac flutter [Not Recovered/Not Resolved]
  - Palpitations [Unknown]
  - Fatigue [Unknown]
  - Constipation [Unknown]
  - Arthralgia [Unknown]
  - Neuropathy peripheral [Unknown]
  - Pain [Unknown]
  - Asthenia [Unknown]
